FAERS Safety Report 18375565 (Version 3)
Quarter: 2021Q1

REPORT INFORMATION
  Report Type: Spontaneous
  Country: CA (occurrence: CA)
  Receive Date: 20201013
  Receipt Date: 20210303
  Transmission Date: 20210419
  Serious: Yes (Hospitalization, Other)
  Sender: FDA-Public Use
  Company Number: CA-RECORDATI RARE DISEASES-2092696

PATIENT
  Age: 64 Year
  Sex: Male

DRUGS (21)
  1. SYNTHROID [Concomitant]
     Active Substance: LEVOTHYROXINE SODIUM
  2. TRULICITY [Concomitant]
     Active Substance: DULAGLUTIDE
     Route: 058
  3. APO?GLICLAZIDE [Concomitant]
     Active Substance: GLICLAZIDE
  4. SIGNIFOR LAR [Suspect]
     Active Substance: PASIREOTIDE PAMOATE
  5. AVAPRO [Concomitant]
     Active Substance: IRBESARTAN
  6. SIGNIFOR LAR [Suspect]
     Active Substance: PASIREOTIDE PAMOATE
     Dates: start: 2019
  7. CORTEF [Concomitant]
     Active Substance: HYDROCORTISONE
  8. IRBESARTAN. [Concomitant]
     Active Substance: IRBESARTAN
  9. MAGNESIUM [Concomitant]
     Active Substance: MAGNESIUM
  10. SIGNIFOR LAR [Suspect]
     Active Substance: PASIREOTIDE PAMOATE
     Indication: ACROMEGALY
     Route: 030
     Dates: start: 20171006
  11. SOMAVERT [Concomitant]
     Active Substance: PEGVISOMANT
  12. METFORMIN [Concomitant]
     Active Substance: METFORMIN HYDROCHLORIDE
  13. ROSUVASTATIN. [Concomitant]
     Active Substance: ROSUVASTATIN
  14. JAMP ASA [Concomitant]
     Active Substance: ASPIRIN
  15. SIGNIFOR LAR [Suspect]
     Active Substance: PASIREOTIDE PAMOATE
     Dates: start: 20200708
  16. PREGABALIN. [Concomitant]
     Active Substance: PREGABALIN
  17. URSODIOL. [Concomitant]
     Active Substance: URSODIOL
  18. DOSTINEX [Concomitant]
     Active Substance: CABERGOLINE
  19. NOVOSYMVASTATIN [Concomitant]
  20. OMEPRAZOLE. [Concomitant]
     Active Substance: OMEPRAZOLE
  21. VIT D [Concomitant]
     Active Substance: VITAMIN D NOS

REACTIONS (8)
  - Myocardial infarction [Unknown]
  - Blood pressure systolic increased [Unknown]
  - Gait disturbance [Not Recovered/Not Resolved]
  - Cardiac pacemaker insertion [Unknown]
  - Fall [Recovered/Resolved]
  - Arthralgia [Not Recovered/Not Resolved]
  - Arrhythmia [Unknown]
  - Bradycardia [Recovered/Resolved]

NARRATIVE: CASE EVENT DATE: 2020
